FAERS Safety Report 6220634-1 (Version None)
Quarter: 2009Q2

REPORT INFORMATION
  Report Type: 
  Country: None (occurrence: None)
  Receive Date: 20090610
  Receipt Date: 20090528
  Transmission Date: 20091009
  Serious: Yes (Other)
  Sender: FDA-Public Use
  Company Number: US-ROCHE-631284

PATIENT
  Sex: Female
  Weight: 71.7 kg

DRUGS (6)
  1. PEGASYS [Suspect]
     Indication: HEPATITIS C
     Dosage: FORM: PRE FILLED SYRINGE
     Route: 058
     Dates: start: 20080906
  2. RIBAVIRIN [Suspect]
     Indication: HEPATITIS C
     Route: 048
     Dates: start: 20080906
  3. AMBIEN [Concomitant]
     Indication: SLEEP DISORDER THERAPY
     Dosage: FREQ: QHS (EVERY NIGHT)
     Route: 048
  4. TYLENOL (CAPLET) [Concomitant]
     Indication: ANALGESIC THERAPY
     Dosage: DOSE:^OTC^
     Route: 048
  5. ADVIL [Concomitant]
     Indication: ANALGESIC THERAPY
     Dosage: PRN (AS NEEDED)
     Route: 048
  6. NYSTATIN [Concomitant]
     Indication: PAIN
     Dosage: DRUG NAME: NYSTATIN SUSP FREQ: PRN (AS NEEDED)
     Route: 048

REACTIONS (4)
  - MOUTH ULCERATION [None]
  - OROPHARYNGEAL BLISTERING [None]
  - PRESYNCOPE [None]
  - TONGUE DISORDER [None]
